FAERS Safety Report 14484262 (Version 1)
Quarter: 2018Q1

REPORT INFORMATION
  Report Type: Other
  Country: IT (occurrence: IT)
  Receive Date: 20180205
  Receipt Date: 20180205
  Transmission Date: 20180509
  Serious: Yes (Hospitalization, Other)
  Sender: FDA-Public Use
  Company Number: IT-ACTELION-A-CH2018-166817

PATIENT
  Age: 31 Year

DRUGS (1)
  1. BOSENTAN. [Suspect]
     Active Substance: BOSENTAN
     Indication: CONGENITAL PULMONARY VALVE ATRESIA
     Dosage: 125 MG, BID
     Route: 048

REACTIONS (5)
  - Arterial stent insertion [Unknown]
  - Pulmonary arterial wedge pressure increased [Unknown]
  - Heart transplant [Unknown]
  - Cardiac failure [Unknown]
  - Pulmonary arterial pressure increased [Unknown]
